FAERS Safety Report 18048772 (Version 1)
Quarter: 2020Q3

REPORT INFORMATION
  Report Type: Spontaneous
  Country: US (occurrence: US)
  Receive Date: 20200720
  Receipt Date: 20200720
  Transmission Date: 20201103
  Serious: Yes (Other)
  Sender: FDA-Public Use
  Company Number: None

PATIENT
  Age: 23 Year
  Sex: Female
  Weight: 90.72 kg

DRUGS (4)
  1. NEUTROGENA OIL FREE ACNE WASH PINK GRAPEFRUIT FOAMING SCRUB [Suspect]
     Active Substance: SALICYLIC ACID
     Indication: ACNE
     Route: 061
     Dates: start: 20190108
  2. NEUTROGENA OIL FREE ACNE MOISTURIZER PINK GRAPEFRUIT [Suspect]
     Active Substance: SALICYLIC ACID
     Indication: ACNE
     Dosage: ?          OTHER DOSE:LIBERALIY DIMESIZE AMOUNT;?
     Route: 061
     Dates: start: 20190108, end: 20190110
  3. ZOLOFT (SERTRALINE HYDROCHLORIDE)(UNKNOWN)(SERTRALINE HYDROCHLORIDE) [Concomitant]
  4. NEUTROGENA OIL FREE ACNE WASH PINK GRAPEFRUIT CLEANSING WIPES [Suspect]
     Active Substance: SALICYLIC ACID

REACTIONS (15)
  - Rash [None]
  - Burning sensation [None]
  - Oedema peripheral [None]
  - Facial pain [None]
  - Rash pruritic [None]
  - Skin discolouration [None]
  - Anaphylactic shock [None]
  - Application site burn [None]
  - Anxiety [None]
  - Pharyngeal swelling [None]
  - Dyspnoea [None]
  - Injury [None]
  - Discomfort [None]
  - Hypersensitivity [None]
  - Lip swelling [None]

NARRATIVE: CASE EVENT DATE: 20190110
